FAERS Safety Report 23753899 (Version 1)
Quarter: 2024Q2

REPORT INFORMATION
  Report Type: Report from Study
  Country: CA (occurrence: CA)
  Receive Date: 20240417
  Receipt Date: 20240417
  Transmission Date: 20240716
  Serious: Yes (Hospitalization, Other)
  Sender: FDA-Public Use
  Company Number: CA-HLS-202400998

PATIENT
  Sex: Male

DRUGS (1)
  1. CLOZARIL [Suspect]
     Active Substance: CLOZAPINE
     Indication: Schizophrenia
     Route: 048
     Dates: start: 20240324

REACTIONS (5)
  - Delusion [Not Recovered/Not Resolved]
  - Decreased appetite [Unknown]
  - Poor quality sleep [Not Recovered/Not Resolved]
  - Tachycardia [Not Recovered/Not Resolved]
  - Condition aggravated [Unknown]
